FAERS Safety Report 6464592-3 (Version None)
Quarter: 2009Q4

REPORT INFORMATION
  Report Type: 
  Country: None (occurrence: None)
  Receive Date: 20091124
  Receipt Date: 20091111
  Transmission Date: 20100525
  Serious: Yes (Death)
  Sender: FDA-Public Use
  Company Number: 2009AC000396

PATIENT
  Sex: Male

DRUGS (1)
  1. DIGOXIN [Suspect]
     Dates: start: 20011201, end: 20071001

REACTIONS (2)
  - ECONOMIC PROBLEM [None]
  - ILL-DEFINED DISORDER [None]
